FAERS Safety Report 15647957 (Version 3)
Quarter: 2019Q1

REPORT INFORMATION
  Report Type: Spontaneous
  Country: US (occurrence: US)
  Receive Date: 20181122
  Receipt Date: 20190326
  Transmission Date: 20190417
  Serious: No
  Sender: FDA-Public Use
  Company Number: US-TEVA-2018-US-976981

PATIENT
  Age: 75 Year
  Sex: Male

DRUGS (6)
  1. TREANDA [Suspect]
     Active Substance: BENDAMUSTINE HYDROCHLORIDE
     Indication: NON-HODGKIN^S LYMPHOMA
  2. BENDECA [Concomitant]
     Indication: NON-HODGKIN^S LYMPHOMA
  3. TREANDA [Suspect]
     Active Substance: BENDAMUSTINE HYDROCHLORIDE
     Indication: HISTIOCYTIC SARCOMA
     Dosage: 96 MG/M2, CYCLIC (6 CYCLES)
     Route: 042
     Dates: start: 20170710
  4. BENDECA [Concomitant]
     Indication: HISTIOCYTIC SARCOMA
     Dosage: 96 MG/M2, CYCLIC (6 CYCLES)
     Route: 042
  5. RITUXAN [Suspect]
     Active Substance: RITUXIMAB
     Indication: HISTIOCYTIC SARCOMA
     Dosage: 700 MG, OTHER (Q 8 WEEKS)
     Route: 065
     Dates: start: 20170710
  6. RITUXAN [Suspect]
     Active Substance: RITUXIMAB
     Indication: NON-HODGKIN^S LYMPHOMA

REACTIONS (2)
  - Product use in unapproved indication [Unknown]
  - Abdominal discomfort [Unknown]
